FAERS Safety Report 9723422 (Version 4)
Quarter: 2013Q4

REPORT INFORMATION
  Report Type: Spontaneous
  Country: US (occurrence: US)
  Receive Date: 20131202
  Receipt Date: 20131219
  Transmission Date: 20140711
  Serious: Yes (Hospitalization)
  Sender: FDA-Public Use
  Company Number: US-GILEAD-2013-0087484

PATIENT
  Sex: Female

DRUGS (4)
  1. LETAIRIS [Suspect]
     Indication: PULMONARY HYPERTENSION
     Dosage: 10 MG, QD
     Dates: start: 20070907
  2. LETAIRIS [Suspect]
     Indication: HEART DISEASE CONGENITAL
  3. REMODULIN [Suspect]
     Indication: PRODUCT USED FOR UNKNOWN INDICATION
  4. CIALIS [Concomitant]

REACTIONS (3)
  - Cartilage injury [Unknown]
  - Malaise [Not Recovered/Not Resolved]
  - Unevaluable event [Unknown]
